FAERS Safety Report 11825264 (Version 1)
Quarter: 2015Q4

REPORT INFORMATION
  Report Type: Spontaneous
  Country: US (occurrence: US)
  Receive Date: 20151211
  Receipt Date: 20151211
  Transmission Date: 20160305
  Serious: No
  Sender: FDA-Public Use
  Company Number: US-LUPIN PHARMACEUTICALS INC.-2015-03227

PATIENT
  Sex: Male

DRUGS (2)
  1. LISINOPRIL TABLETS USP 10MG [Suspect]
     Active Substance: LISINOPRIL
     Indication: PRODUCT USED FOR UNKNOWN INDICATION
     Route: 065
     Dates: end: 20150914
  2. LISINOPRIL TABLETS USP 10MG [Suspect]
     Active Substance: LISINOPRIL
     Dosage: 1/3 OF 10 MG TABLET
     Route: 065

REACTIONS (4)
  - Pain in extremity [Unknown]
  - Tremor [Unknown]
  - Anxiety [Unknown]
  - Drug withdrawal syndrome [Unknown]
